FAERS Safety Report 12400230 (Version 1)
Quarter: 2016Q2

REPORT INFORMATION
  Report Type: Spontaneous
  Country: US (occurrence: None)
  Receive Date: 20160524
  Receipt Date: 20160524
  Transmission Date: 20160815
  Serious: Yes (Disabling)
  Sender: FDA-Public Use
  Company Number: None

PATIENT
  Age: 53 Year
  Sex: Male
  Weight: 90.72 kg

DRUGS (2)
  1. PROPECIA [Suspect]
     Active Substance: FINASTERIDE
     Indication: ALOPECIA
     Route: 048
  2. ALEVE [Concomitant]
     Active Substance: NAPROXEN SODIUM

REACTIONS (18)
  - Alcohol intolerance [None]
  - Amnesia [None]
  - Dysgraphia [None]
  - Foreign body sensation in eyes [None]
  - Erectile dysfunction [None]
  - Hangover [None]
  - Mental impairment [None]
  - Nasopharyngitis [None]
  - Asthenia [None]
  - Feeling abnormal [None]
  - Influenza [None]
  - Disturbance in attention [None]
  - Vision blurred [None]
  - Lethargy [None]
  - Loss of libido [None]
  - Frustration tolerance decreased [None]
  - Depression [None]
  - Malaise [None]
